FAERS Safety Report 6085153-4 (Version None)
Quarter: 2009Q1

REPORT INFORMATION
  Report Type: 
  Country: None (occurrence: None)
  Receive Date: 20090218
  Receipt Date: 20090205
  Transmission Date: 20090719
  Serious: Yes (Life-Threatening)
  Sender: FDA-Public Use
  Company Number: 2008000479

PATIENT
  Sex: Female

DRUGS (3)
  1. ERLOTINIB (ERLOTINIB HCL) (ERLOTINIB HCL) [Suspect]
     Indication: LUNG ADENOCARCINOMA
     Dosage: (150 MG, QD), ORAL
     Route: 048
     Dates: start: 20071223, end: 20080122
  2. RABEPRAZOLE SODIUM [Concomitant]
  3. ALFAROL (ALFACALCIDOL) [Concomitant]

REACTIONS (4)
  - CERVIX DISORDER [None]
  - DISSEMINATED INTRAVASCULAR COAGULATION [None]
  - MELAENA [None]
  - METASTASIS [None]
